FAERS Safety Report 8524459-3 (Version None)
Quarter: 2012Q3

REPORT INFORMATION
  Report Type: 
  Country: None (occurrence: None)
  Receive Date: 20120720
  Receipt Date: 20120717
  Transmission Date: 20120928
  Serious: Yes (Other)
  Sender: FDA-Public Use
  Company Number: US-PFIZER INC-2012172665

PATIENT
  Sex: Female
  Weight: 63.5 kg

DRUGS (3)
  1. LANTUS [Concomitant]
     Indication: DIABETES MELLITUS
     Dosage: 15 UNITS AT NIGHT DAILY
  2. LIPITOR [Suspect]
     Indication: BLOOD CHOLESTEROL ABNORMAL
     Dosage: 40 MG, DAILY
     Route: 048
  3. METFORMIN [Concomitant]
     Indication: DIABETES MELLITUS
     Dosage: 40 MG, 2X/DAY

REACTIONS (1)
  - NEUROPATHY PERIPHERAL [None]
